FAERS Safety Report 7987614-7 (Version None)
Quarter: 2011Q4

REPORT INFORMATION
  Report Type: 
  Country: None (occurrence: None)
  Receive Date: 20111216
  Receipt Date: 20110303
  Transmission Date: 20120403
  Serious: No
  Sender: FDA-Public Use
  Company Number: US-BRISTOL-MYERS SQUIBB COMPANY-14456511

PATIENT
  Age: 53 Year
  Sex: Male

DRUGS (2)
  1. TRAZODONE HCL [Concomitant]
  2. ABILIFY [Suspect]
     Indication: BIPOLAR I DISORDER
     Dates: start: 20050401, end: 20080101

REACTIONS (2)
  - TARDIVE DYSKINESIA [None]
  - RESTLESS LEGS SYNDROME [None]
